FAERS Safety Report 6496847-0 (Version None)
Quarter: 2009Q4

REPORT INFORMATION
  Report Type: 
  Country: None (occurrence: None)
  Receive Date: 20091125
  Receipt Date: 20090422
  Transmission Date: 20100525
  Serious: Yes (Other)
  Sender: FDA-Public Use
  Company Number: 2009BH006619

PATIENT
  Age: 45 Year
  Sex: Female

DRUGS (6)
  1. DIANEAL [Suspect]
     Indication: PERITONEAL DIALYSIS
     Dosage: 8.5 L; EVERY DAY; IP
     Route: 033
     Dates: start: 20081208
  2. RENVELA [Concomitant]
  3. ROCALTROL [Concomitant]
  4. LOPRESSOR [Concomitant]
  5. LASIX [Concomitant]
  6. EPOGEN [Concomitant]

REACTIONS (3)
  - BLOODY PERITONEAL EFFLUENT [None]
  - PERITONEAL DIALYSIS COMPLICATION [None]
  - PERITONITIS BACTERIAL [None]
